FAERS Safety Report 23684105 (Version 1)
Quarter: 2024Q1

REPORT INFORMATION
  Report Type: Spontaneous
  Country: FR (occurrence: FR)
  Receive Date: 20240328
  Receipt Date: 20240328
  Transmission Date: 20240410
  Serious: Yes (Hospitalization, Other)
  Sender: FDA-Public Use
  Company Number: None

PATIENT
  Age: 74 Year
  Sex: Male
  Weight: 73 kg

DRUGS (19)
  1. RITUXIMAB [Suspect]
     Active Substance: RITUXIMAB
     Indication: Central nervous system lymphoma
     Dosage: ONE INJECTION OF 650 MG AT D1C1
     Route: 042
     Dates: start: 20231129, end: 20231129
  2. RITUXIMAB [Suspect]
     Active Substance: RITUXIMAB
     Dosage: ONE INJECTION OF 650 MG AT D8C1
     Route: 042
     Dates: start: 20231206, end: 20231206
  3. RITUXIMAB [Suspect]
     Active Substance: RITUXIMAB
     Dosage: ONE INJECTION OF 650 MG AT D15C1
     Route: 042
     Dates: start: 20231213, end: 20231213
  4. RITUXIMAB [Suspect]
     Active Substance: RITUXIMAB
     Dosage: ONE INJECTION OF 650 MG AT D22C1
     Route: 042
     Dates: start: 20231220, end: 20231220
  5. RITUXIMAB [Suspect]
     Active Substance: RITUXIMAB
     Dosage: ONE INJECTION OF 660 MG AT D1C2
     Route: 042
     Dates: start: 20231227, end: 20231227
  6. RITUXIMAB [Suspect]
     Active Substance: RITUXIMAB
     Dosage: ONE INJECTION OF 660 MG AT D1C3
     Route: 042
     Dates: start: 20240202, end: 20240202
  7. IBRUTINIB [Suspect]
     Active Substance: IBRUTINIB
     Indication: Central nervous system lymphoma
     Dosage: 560 MG, 1X/DAY IN CONTINUE
     Route: 048
     Dates: start: 20231129, end: 20231227
  8. IBRUTINIB [Suspect]
     Active Substance: IBRUTINIB
     Dosage: 420 MG, 1X/DAY IN CONTINUE
     Route: 048
     Dates: start: 20231227, end: 20240126
  9. IBRUTINIB [Suspect]
     Active Substance: IBRUTINIB
     Dosage: 560 MG, 1X/DAY IN CONTINUE
     Route: 048
     Dates: start: 20240202, end: 20240222
  10. FUROSEMIDE [Suspect]
     Active Substance: FUROSEMIDE
     Indication: Oedema peripheral
     Dosage: 20 MG, 1X/DAY
     Route: 048
     Dates: start: 20240123, end: 20240130
  11. LENALIDOMIDE [Suspect]
     Active Substance: LENALIDOMIDE
     Indication: Central nervous system lymphoma
     Dosage: 20 MG, 1X/DAY FOR 21 DAYS (EARLY STOP)
     Route: 048
     Dates: start: 20231129, end: 20231218
  12. LENALIDOMIDE [Suspect]
     Active Substance: LENALIDOMIDE
     Dosage: 25 MG, 1X/DAY FOR 21 DAYS
     Route: 048
     Dates: start: 20231227, end: 20240117
  13. LENALIDOMIDE [Suspect]
     Active Substance: LENALIDOMIDE
     Dosage: 25 MG, 1X/DAY FOR 20 DAYS
     Route: 048
     Dates: start: 20240202, end: 20240222
  14. PANTOPRAZOLE [Concomitant]
     Active Substance: PANTOPRAZOLE
     Dosage: UNK
     Dates: start: 20231129
  15. PREDNISONE [Concomitant]
     Active Substance: PREDNISONE
     Dosage: UNK
     Dates: start: 20231120
  16. POTASSIUM CHLORIDE [Concomitant]
     Active Substance: POTASSIUM CHLORIDE
     Dosage: INTRODUCED BEFORE 26DEC2023
  17. PHOCYTAN [Concomitant]
     Active Substance: .ALPHA.-GLUCOSE-1-PHOSPHATE
     Dosage: INTRODUCED BEFORE 26DEC2023
  18. VALACYCLOVIR HYDROCHLORIDE [Concomitant]
     Active Substance: VALACYCLOVIR HYDROCHLORIDE
     Dosage: FOR SEVERAL MONTHS
  19. BISOPROLOL [Concomitant]
     Active Substance: BISOPROLOL\BISOPROLOL FUMARATE
     Dosage: UNK
     Dates: start: 20231224

REACTIONS (1)
  - Drug reaction with eosinophilia and systemic symptoms [Recovering/Resolving]

NARRATIVE: CASE EVENT DATE: 20240222
